FAERS Safety Report 6021119-8 (Version None)
Quarter: 2008Q4

REPORT INFORMATION
  Report Type: 
  Country: None (occurrence: None)
  Receive Date: 20081229
  Receipt Date: 20081216
  Transmission Date: 20090506
  Serious: Yes (Other)
  Sender: FDA-Public Use
  Company Number: US-PFIZER INC-2008155764

PATIENT
  Sex: Female

DRUGS (1)
  1. CELEBREX [Suspect]
     Indication: MIGRAINE
     Dates: start: 20081101, end: 20081212

REACTIONS (4)
  - ABASIA [None]
  - DYSPNOEA [None]
  - EAR PAIN [None]
  - HYPERTENSION [None]
